FAERS Safety Report 11938678 (Version 1)
Quarter: 2016Q1

REPORT INFORMATION
  Report Type: Spontaneous
  Country: CN (occurrence: CN)
  Receive Date: 20160122
  Receipt Date: 20160122
  Transmission Date: 20160526
  Serious: Yes (Other)
  Sender: FDA-Public Use
  Company Number: CN-SUN PHARMACEUTICAL INDUSTRIES LTD-2016RR-109986

PATIENT

DRUGS (4)
  1. ACETYLSALICYLIC ACID [Concomitant]
     Active Substance: ASPIRIN
     Indication: ANTIPLATELET THERAPY
     Dosage: 300 MG
     Route: 048
  2. CLOPIDOGREL [Suspect]
     Active Substance: CLOPIDOGREL BISULFATE
     Indication: ANTIPLATELET THERAPY
     Dosage: 75 MG
     Route: 048
  3. TIROFIBAN [Concomitant]
     Active Substance: TIROFIBAN
     Indication: ANTIPLATELET THERAPY
     Dosage: 0.15 ?G/KG/MIN AS CONTINUOUS INFUSION FOR ABOUT 36 H
     Route: 042
  4. TIROFIBAN [Concomitant]
     Active Substance: TIROFIBAN
     Indication: ANTIPLATELET THERAPY
     Dosage: 0.4 ?G/KG/MIN FOR 30 MIN
     Route: 042

REACTIONS (3)
  - Vascular stent thrombosis [Recovered/Resolved]
  - Therapeutic response decreased [Unknown]
  - Disease recurrence [Recovered/Resolved]
